FAERS Safety Report 23559847 (Version 7)
Quarter: 2024Q2

REPORT INFORMATION
  Report Type: Spontaneous
  Country: AU (occurrence: AU)
  Receive Date: 20240223
  Receipt Date: 20240508
  Transmission Date: 20240716
  Serious: Yes (Hospitalization, Other)
  Sender: FDA-Public Use
  Company Number: AU-MLMSERVICE-20240215-4832853-1

PATIENT
  Sex: Male
  Weight: 2.71 kg

DRUGS (23)
  1. LINEZOLID [Suspect]
     Active Substance: LINEZOLID
     Indication: Mycobacterial infection
     Dosage: 15 MG/KG, 2X/DAY (FROM 3RD WEEK OF TREATMENT TO 11TH WEEK OF TREATMENT)
     Route: 048
  2. LINEZOLID [Suspect]
     Active Substance: LINEZOLID
     Indication: Congenital tuberculosis
     Dosage: 20 MG/KG, 2X/DAY (FROM 12TH WEEK TO 6 MONTHS OF TREATMENT)
     Route: 048
     Dates: start: 20220202
  3. LINEZOLID [Suspect]
     Active Substance: LINEZOLID
     Dosage: 15 MG/KG, DAILY (FROM 12 MONTHS OF TREATMENT TO 13 MONTHS OF TREATMENT)
     Route: 048
  4. LINEZOLID [Suspect]
     Active Substance: LINEZOLID
     Indication: Mycobacterial infection
     Dosage: 15 MG/KG, 2X/DAY (600 MG/300 ML INJECTION), ON 3-11 WEEK OF TREATMENT
     Route: 042
     Dates: start: 20220202
  5. LINEZOLID [Suspect]
     Active Substance: LINEZOLID
     Indication: Congenital tuberculosis
  6. PYRIDOXINE [Concomitant]
     Active Substance: PYRIDOXINE
     Indication: Congenital tuberculosis
     Dosage: 10 MG, 1X/DAY (100 MG/2 ML INJECTION), ON WEEK 1 TO 7TH MONTH OF TREATMENT
     Route: 042
  7. PYRIDOXINE [Concomitant]
     Active Substance: PYRIDOXINE
     Indication: Mycobacterial infection
  8. PYRIDOXINE [Concomitant]
     Active Substance: PYRIDOXINE
     Indication: Congenital tuberculosis
     Dosage: 10 MG, 1X/DAY (SUSPENSION). ON WEEK 1 TO 7TH MONTH OF TREATMENT
     Route: 048
  9. PYRIDOXINE [Concomitant]
     Active Substance: PYRIDOXINE
     Indication: Mycobacterial infection
  10. PROTIONAMIDE [Concomitant]
     Active Substance: PROTIONAMIDE
     Indication: Congenital tuberculosis
     Dosage: 20 MG/KG, 2X/DAY (SUSPENSION), ON 3-7 WEEK OF TREATMENT
     Route: 048
  11. PROTIONAMIDE [Concomitant]
     Active Substance: PROTIONAMIDE
     Indication: Mycobacterial infection
  12. CYCLOSERINE [Concomitant]
     Active Substance: CYCLOSERINE
     Indication: Mycobacterial infection
     Dosage: 20 MG/KG, 2X/DAY (ON WEEK 3 TO 7TH MONTH OF TREATMENT)
     Route: 048
  13. CYCLOSERINE [Concomitant]
     Active Substance: CYCLOSERINE
     Indication: Congenital tuberculosis
  14. DELAMANID [Concomitant]
     Active Substance: DELAMANID
     Indication: Congenital tuberculosis
     Dosage: 12.5 MG, DAILY, AT 5-11 WEEK OF TREATMENT
     Route: 048
  15. DELAMANID [Concomitant]
     Active Substance: DELAMANID
     Indication: Mycobacterial infection
     Dosage: 25 MG, DAILY, AT 12 WEEK TO 5 MONTHS OF TREATMENT
     Route: 048
  16. DELAMANID [Concomitant]
     Active Substance: DELAMANID
     Dosage: 50 MG, 2X/DAY, AT 6-9 MONTHS OF TREATMENT
     Route: 048
  17. DELAMANID [Concomitant]
     Active Substance: DELAMANID
     Dosage: 50 MG, 2X/DAY, AT 11-13 MONTHS OF TREATMENT
     Route: 048
  18. CLOFAZIMINE [Concomitant]
     Active Substance: CLOFAZIMINE
     Indication: Congenital tuberculosis
     Dosage: 5 MG/KG, DAILY, AT 10 WEEK- 9 MONTHS OF TREATMENT
     Route: 048
  19. CLOFAZIMINE [Concomitant]
     Active Substance: CLOFAZIMINE
     Indication: Mycobacterial infection
  20. BEDAQUILINE [Concomitant]
     Active Substance: BEDAQUILINE
     Indication: Congenital tuberculosis
     Dosage: 30 MG, DAILY, AT 12-13 WEEK OF TREATMET
     Route: 048
  21. BEDAQUILINE [Concomitant]
     Active Substance: BEDAQUILINE
     Indication: Mycobacterial infection
     Dosage: 10 MG ON MON/WED/FRI AT 14 WEEKS-5 MONTHS OF TREATMENT
     Route: 048
  22. BEDAQUILINE [Concomitant]
     Active Substance: BEDAQUILINE
     Dosage: 20 MG, M/W/F AT 6-9 MONTHS OF TREATMENT
     Route: 048
  23. BEDAQUILINE [Concomitant]
     Active Substance: BEDAQUILINE
     Dosage: 20 MG, M/W/F AT 11-13 MONTHS OF TREATMENT
     Route: 048

REACTIONS (3)
  - Neutropenia [Recovered/Resolved]
  - Deafness neurosensory [Not Recovered/Not Resolved]
  - Off label use [Unknown]

NARRATIVE: CASE EVENT DATE: 20220404
